FAERS Safety Report 13176594 (Version 3)
Quarter: 2017Q1

REPORT INFORMATION
  Report Type: Spontaneous
  Country: JP (occurrence: JP)
  Receive Date: 20170201
  Receipt Date: 20170217
  Transmission Date: 20170428
  Serious: Yes (Hospitalization, Other)
  Sender: FDA-Public Use
  Company Number: JP-ALLERGAN-1703727US

PATIENT
  Age: 67 Year
  Sex: Male

DRUGS (2)
  1. BOTOX [Suspect]
     Active Substance: ONABOTULINUMTOXINA
     Indication: MUSCLE SPASTICITY
     Dosage: 240 UNITS, SINGLE
     Route: 030
     Dates: start: 20161227, end: 20161227
  2. BOTOX [Suspect]
     Active Substance: ONABOTULINUMTOXINA
     Indication: MUSCLE SPASTICITY
     Dosage: 120 UNITS, SINGLE
     Route: 030
     Dates: start: 20161227, end: 20161227

REACTIONS (4)
  - Altered state of consciousness [Unknown]
  - Blood pressure fluctuation [Unknown]
  - Vomiting [Unknown]
  - Ileus [Unknown]

NARRATIVE: CASE EVENT DATE: 20170101
